FAERS Safety Report 13413174 (Version 4)
Quarter: 2017Q3

REPORT INFORMATION
  Report Type: Spontaneous
  Country: GB (occurrence: GB)
  Receive Date: 20170407
  Receipt Date: 20170719
  Transmission Date: 20171127
  Serious: Yes (Other)
  Sender: FDA-Public Use
  Company Number: GB-SA-2017SA056430

PATIENT
  Age: 75 Year
  Sex: Female

DRUGS (12)
  1. CO-BENELDOPA [Suspect]
     Active Substance: BENSERAZIDE HYDROCHLORIDE\LEVODOPA
     Route: 065
  2. LANSOPRAZOLE. [Suspect]
     Active Substance: LANSOPRAZOLE
     Route: 065
  3. DOMPERIDONE [Suspect]
     Active Substance: DOMPERIDONE
     Route: 065
  4. CITALOPRAM [Suspect]
     Active Substance: CITALOPRAM HYDROBROMIDE
     Route: 065
  5. ROPINIROLE. [Suspect]
     Active Substance: ROPINIROLE
     Route: 065
  6. CEREZYME [Suspect]
     Active Substance: IMIGLUCERASE
     Dosage: DOSE:800 UNIT(S)
     Route: 041
  7. QUETIAPINE FUMARATE. [Suspect]
     Active Substance: QUETIAPINE FUMARATE
     Route: 065
  8. LACTULOSE. [Suspect]
     Active Substance: LACTULOSE
     Route: 065
  9. SENNA [Suspect]
     Active Substance: SENNA LEAF\SENNOSIDES\SENNOSIDES A AND B
     Route: 065
  10. BISOPROLOL [Suspect]
     Active Substance: BISOPROLOL
     Route: 065
  11. CYCLIZINE [Suspect]
     Active Substance: CYCLIZINE
     Route: 065
  12. RIVASTIGMINE. [Suspect]
     Active Substance: RIVASTIGMINE
     Route: 065

REACTIONS (2)
  - Dizziness [Unknown]
  - Parkinson^s disease [Unknown]
